FAERS Safety Report 18604014 (Version 2)
Quarter: 2021Q1

REPORT INFORMATION
  Report Type: Report from Study
  Country: US (occurrence: US)
  Receive Date: 20201211
  Receipt Date: 20210120
  Transmission Date: 20210419
  Serious: Yes (Other)
  Sender: FDA-Public Use
  Company Number: US-GLAXOSMITHKLINE-US2020AMR062667

PATIENT
  Sex: Female

DRUGS (7)
  1. NIRAPARIB [Suspect]
     Active Substance: NIRAPARIB
     Indication: MALIGNANT PERITONEAL NEOPLASM
     Dosage: 200 MG, QD
     Route: 065
     Dates: start: 20200212
  2. NIRAPARIB [Suspect]
     Active Substance: NIRAPARIB
     Dosage: 100 MG, QOD
     Dates: start: 20200821
  3. NIRAPARIB [Suspect]
     Active Substance: NIRAPARIB
     Dosage: 200 MG, QD
     Dates: end: 20201201
  4. NIRAPARIB [Suspect]
     Active Substance: NIRAPARIB
     Dosage: 100 MG, QD
     Route: 065
     Dates: start: 20200627
  5. NIRAPARIB [Suspect]
     Active Substance: NIRAPARIB
     Dosage: 200 MG, DAILY
     Route: 065
     Dates: start: 20200215, end: 20200527
  6. NIRAPARIB [Suspect]
     Active Substance: NIRAPARIB
     Dosage: 200 MG, QOD
  7. NIRAPARIB [Suspect]
     Active Substance: NIRAPARIB
     Dosage: UNK,100MG QOD, ALT W/200MG QOD

REACTIONS (9)
  - Underdose [Unknown]
  - Product use issue [Unknown]
  - Product dose omission issue [Unknown]
  - Nausea [Not Recovered/Not Resolved]
  - Fatigue [Recovered/Resolved]
  - Platelet count decreased [Recovering/Resolving]
  - Drug ineffective [Unknown]
  - Recurrent cancer [Unknown]
  - Constipation [Unknown]
